FAERS Safety Report 5455313-1 (Version None)
Quarter: 2007Q3

REPORT INFORMATION
  Report Type: 
  Country: None (occurrence: None)
  Receive Date: 20070913
  Receipt Date: 20070913
  Transmission Date: 20080115
  Serious: Yes (Hospitalization)
  Sender: FDA-Public Use
  Company Number: None

PATIENT
  Age: 85 Year
  Sex: Male

DRUGS (2)
  1. LISINOPRIL [Suspect]
     Indication: HYPERTENSION
     Dosage: 2.5MG EVERY DAY PO
     Route: 048
     Dates: start: 20070723, end: 20070823
  2. LITHIUM [Suspect]
     Indication: BIPOLAR DISORDER
     Dosage: 300MG EVERY DAY PO
     Route: 048
     Dates: start: 20040301, end: 20070823

REACTIONS (2)
  - RENAL FAILURE ACUTE [None]
  - THERAPEUTIC AGENT TOXICITY [None]
